FAERS Safety Report 7302394-6 (Version None)
Quarter: 2011Q1

REPORT INFORMATION
  Report Type: 
  Country: None (occurrence: None)
  Receive Date: 20110218
  Receipt Date: 20100331
  Transmission Date: 20110831
  Serious: No
  Sender: FDA-Public Use
  Company Number: US-ASTRAZENECA-2010SE14218

PATIENT
  Age: 47 Year
  Sex: Female

DRUGS (1)
  1. ACCOLATE [Suspect]
     Route: 048
     Dates: start: 19950101

REACTIONS (1)
  - WRIST FRACTURE [None]
